FAERS Safety Report 19327320 (Version 2)
Quarter: 2024Q3

REPORT INFORMATION
  Report Type: Spontaneous
  Country: US (occurrence: US)
  Receive Date: 20210528
  Receipt Date: 20240910
  Transmission Date: 20241016
  Serious: No
  Sender: SANOFI AVENTIS
  Company Number: US-SA-SAC20210521000671

PATIENT
  Age: 57 Year
  Sex: Female

DRUGS (8)
  1. DUPIXENT [Suspect]
     Active Substance: DUPILUMAB
     Indication: Asthma
     Dosage: 300 MG, QOW
     Route: 058
     Dates: start: 2019
  2. ASCORBIC ACID [Concomitant]
     Active Substance: ASCORBIC ACID
     Dosage: 1000 MG
  3. BIOTIN [Concomitant]
     Active Substance: BIOTIN
  4. GLUCOSAMINE + CHONDROITIN + MSM [Concomitant]
     Dosage: UNK UNK, QW
  5. ESTRADIOL [Concomitant]
     Active Substance: ESTRADIOL
  6. MONTELUKAST SODIUM [Concomitant]
     Active Substance: MONTELUKAST\MONTELUKAST SODIUM
  7. VITAMINS NOS [Concomitant]
     Active Substance: VITAMINS
  8. FISH OIL [Concomitant]
     Active Substance: FISH OIL

REACTIONS (7)
  - Respiratory tract congestion [Recovering/Resolving]
  - Chest discomfort [Recovering/Resolving]
  - Inappropriate schedule of product administration [Unknown]
  - Respiratory tract congestion [Unknown]
  - Injection site pain [Unknown]
  - Oropharyngeal discomfort [Unknown]
  - Therapeutic response shortened [Unknown]
